FAERS Safety Report 23454804 (Version 2)
Quarter: 2024Q2

REPORT INFORMATION
  Report Type: Report from Study
  Country: US (occurrence: US)
  Receive Date: 20240130
  Receipt Date: 20240531
  Transmission Date: 20240715
  Serious: No
  Sender: FDA-Public Use
  Company Number: US-ACADIA PHARMACEUTICALS INC.-ACA-2024-PIM-000023

PATIENT
  Age: 80 Year
  Sex: Male

DRUGS (15)
  1. NUPLAZID [Suspect]
     Active Substance: PIMAVANSERIN TARTRATE
     Indication: Parkinson^s disease psychosis
     Dosage: 34 MILLIGRAM, QD
     Route: 048
     Dates: start: 20231227
  2. CARBIDOPA\LEVODOPA [Concomitant]
     Active Substance: CARBIDOPA\LEVODOPA
  3. AMANTADINE [Concomitant]
     Active Substance: AMANTADINE
  4. RASAGILINE [Concomitant]
     Active Substance: RASAGILINE\RASAGILINE MESYLATE
  5. LEVOTHYROXINE [Concomitant]
     Active Substance: LEVOTHYROXINE\LEVOTHYROXINE SODIUM
  6. FINASTERIDE [Concomitant]
     Active Substance: FINASTERIDE
  7. ATORVASTATIN [Concomitant]
     Active Substance: ATORVASTATIN
  8. NITROGLYCERIN [Concomitant]
     Active Substance: NITROGLYCERIN
  9. ESCITALOPRAM [Concomitant]
     Active Substance: ESCITALOPRAM OXALATE
  10. MELOXICAM [Concomitant]
     Active Substance: MELOXICAM
  11. LOSARTAN [Concomitant]
     Active Substance: LOSARTAN
  12. ASPIRIN [Concomitant]
     Active Substance: ASPIRIN
     Dosage: 81 MILLIGRAM
  13. VITAMIN C [Concomitant]
     Active Substance: ASCORBIC ACID
  14. MAGNESIUM CITRATE [Concomitant]
     Active Substance: MAGNESIUM CITRATE
  15. ENTACAPONE [Concomitant]
     Active Substance: ENTACAPONE

REACTIONS (3)
  - Hypoacusis [Unknown]
  - Reflux gastritis [Unknown]
  - Abdominal pain upper [Recovered/Resolved]

NARRATIVE: CASE EVENT DATE: 20240501
